FAERS Safety Report 6037682-7 (Version None)
Quarter: 2009Q1

REPORT INFORMATION
  Report Type: 
  Country: None (occurrence: None)
  Receive Date: 20090113
  Receipt Date: 20090105
  Transmission Date: 20090719
  Serious: Yes (Other)
  Sender: FDA-Public Use
  Company Number: 2008054497

PATIENT
  Age: 42 Year
  Sex: Female
  Weight: 88.9 kg

DRUGS (4)
  1. ZYRTEC [Suspect]
     Indication: HYPERSENSITIVITY
     Dosage: ONCE A DAY, 1 IN 1 D), ORAL
     Route: 048
  2. BENZODIAZEPINE DERIVATIVES    (BENZODIAZEPINE DERIVATIVES) [Suspect]
     Indication: DRUG USE FOR UNKNOWN INDICATION
  3. LEXAPRO [Concomitant]
  4. XANAX [Concomitant]

REACTIONS (3)
  - DRUG SCREEN POSITIVE [None]
  - LOSS OF EMPLOYMENT [None]
  - SELF-MEDICATION [None]
